FAERS Safety Report 9295320 (Version 2)
Quarter: 2014Q1

REPORT INFORMATION
  Report Type: Spontaneous
  Country: BR (occurrence: BR)
  Receive Date: 20130517
  Receipt Date: 20140314
  Transmission Date: 20141002
  Serious: Yes (Other)
  Sender: FDA-Public Use
  Company Number: BR-AMGEN-BRASP2012071993

PATIENT
  Age: 71 Year
  Sex: Female
  Weight: 69 kg

DRUGS (15)
  1. ENBREL [Suspect]
     Indication: RHEUMATOID ARTHRITIS
     Dosage: 50 MG, ONCE WEEKLY
     Route: 058
     Dates: start: 20120808, end: 20130427
  2. ENBREL [Suspect]
     Dosage: 50 MG, ONCE WEEKLY
     Route: 058
     Dates: start: 20140304
  3. CAPTOPRIL [Concomitant]
     Indication: BLOOD PRESSURE INCREASED
     Dosage: 2 TABLETS (50 MG EACH) A DAY
  4. INDAPAMIDE [Concomitant]
     Indication: BLOOD PRESSURE INCREASED
     Dosage: 1 TABLET (1.5 MG), 1X/DAY
  5. SIMVASTATIN [Concomitant]
     Indication: BLOOD CHOLESTEROL ABNORMAL
     Dosage: 1 TABLET (20 MG), 1X/DAY
  6. ALENDRONATE SODIUM [Concomitant]
     Indication: OSTEOPOROSIS
     Dosage: 1 TABLET (70 MG), ONCE WEEKLY
  7. EUTHYROX [Concomitant]
     Indication: THYROID DISORDER
     Dosage: UNK
  8. TIBOLONE [Concomitant]
     Indication: HORMONE REPLACEMENT THERAPY
     Dosage: 1 TABLET (2.5 MG), 1X/DAY
  9. AMITRIPTYLINE [Concomitant]
     Dosage: 1 TABLET (25 MG), 1X/DAY
  10. GABAPENTIN [Concomitant]
     Dosage: 2 TABLETS (300MG EACH) A DAY
  11. ABBOTT CALCI [Concomitant]
     Dosage: 1 TABLET (625MG CALCIUM CARBONATE PLUS 40 IU COLECALCIFEROL), A DAY
  12. PURAN T4 [Concomitant]
     Dosage: 1 TABLET (75 MG), 1X/DAY
  13. METHOTREXATE [Concomitant]
     Dosage: 15 MG (6 TABLETS OF 2.5 MG), ONCE WEEKLY
  14. FOLIC ACID [Concomitant]
     Dosage: 2 TABLETS (UNSPECIFIED DOSE), ONCE WEEKLY
  15. PREDNISONE [Concomitant]
     Dosage: 1 TABLET (5 MG), 1X/DAY

REACTIONS (6)
  - Arthropathy [Unknown]
  - Cough [Not Recovered/Not Resolved]
  - Secretion discharge [Not Recovered/Not Resolved]
  - Sinusitis [Not Recovered/Not Resolved]
  - Anaemia [Unknown]
  - Injection site erythema [Unknown]
